FAERS Safety Report 18561139 (Version 1)
Quarter: 2020Q4

REPORT INFORMATION
  Report Type: Spontaneous
  Country: JP (occurrence: JP)
  Receive Date: 20201130
  Receipt Date: 20201130
  Transmission Date: 20210114
  Serious: Yes (Death, Hospitalization, Other)
  Sender: FDA-Public Use
  Company Number: JP-JAZZ-2020-JP-015122

PATIENT
  Age: 32 Year
  Sex: Female

DRUGS (2)
  1. DEFITELIO [Suspect]
     Active Substance: DEFIBROTIDE SODIUM
     Indication: VENOOCCLUSIVE LIVER DISEASE
     Dosage: UNKNOWN DOSAGE
     Route: 042
     Dates: start: 20201028, end: 20201107
  2. DEFITELIO [Suspect]
     Active Substance: DEFIBROTIDE SODIUM
     Dosage: UNKNOWN DOSAGE
     Route: 042
     Dates: start: 20201118, end: 20201118

REACTIONS (3)
  - Respiratory failure [Fatal]
  - Haemorrhage [Recovered/Resolved]
  - Acute pulmonary oedema [Fatal]

NARRATIVE: CASE EVENT DATE: 20201107
